FAERS Safety Report 4316460-0 (Version None)
Quarter: 2004Q1

REPORT INFORMATION
  Report Type: 
  Country: None (occurrence: None)
  Receive Date: 20040311
  Receipt Date: 20040224
  Transmission Date: 20041129
  Serious: Yes (Hospitalization)
  Sender: FDA-Public Use
  Company Number: FR-JNJFOC-20040300265

PATIENT
  Age: 12 Year
  Sex: Male
  Weight: 24 kg

DRUGS (8)
  1. TOPIRAMATE [Suspect]
     Indication: EPILEPSY
     Dosage: 150 MG, IN 1 DAY, ORAL
     Route: 048
     Dates: start: 20030819, end: 20040102
  2. CISAPRIDE (CISAPRIDE) TABLETS [Concomitant]
  3. DI-HYDAN (PHENYTOIN) [Concomitant]
  4. URBANYL (CLOBAZAM) [Concomitant]
  5. CLONAZEPAM [Concomitant]
  6. LAMICTAL [Concomitant]
  7. FORLAX (MACROGOL) [Concomitant]
  8. ADVIL [Concomitant]

REACTIONS (13)
  - ACIDOSIS HYPERCHLORAEMIC [None]
  - ANURIA [None]
  - BLOOD CREATINE PHOSPHOKINASE INCREASED [None]
  - COAGULATION FACTOR INCREASED [None]
  - COMA [None]
  - CONVULSION [None]
  - HAEMATEMESIS [None]
  - HEPATIC FAILURE [None]
  - HYPERTHERMIA [None]
  - HYPOTENSION [None]
  - HYPOTONIA [None]
  - STATUS EPILEPTICUS [None]
  - THROMBOCYTOPENIA [None]
